FAERS Safety Report 9741819 (Version 2)
Quarter: 2013Q4

REPORT INFORMATION
  Report Type: Report from Study
  Country: US (occurrence: US)
  Receive Date: 20131210
  Receipt Date: 20131210
  Transmission Date: 20140711
  Serious: Yes (Hospitalization)
  Sender: FDA-Public Use
  Company Number: PHEH2013US025033

PATIENT
  Age: 22 Year
  Sex: Male
  Weight: 79.37 kg

DRUGS (1)
  1. GILENYA [Suspect]
     Indication: MULTIPLE SCLEROSIS
     Dosage: 0.5 MG, QD
     Route: 048
     Dates: start: 20130201

REACTIONS (4)
  - Road traffic accident [Unknown]
  - Concussion [Unknown]
  - Vision blurred [Unknown]
  - Multiple sclerosis relapse [Unknown]
